FAERS Safety Report 5773309-7 (Version None)
Quarter: 2008Q2

REPORT INFORMATION
  Report Type: 
  Country: None (occurrence: None)
  Receive Date: 20080601
  Receipt Date: 20080121
  Transmission Date: 20081010
  Serious: No
  Sender: FDA-Public Use
  Company Number: US200704003606

PATIENT
  Age: 67 Year
  Sex: Female
  Weight: 84.4 kg

DRUGS (12)
  1. BYETTA [Suspect]
     Indication: TYPE 2 DIABETES MELLITUS
     Dosage: SEE IMAGE
     Route: 058
     Dates: start: 20050101, end: 20061201
  2. BYETTA [Suspect]
     Indication: TYPE 2 DIABETES MELLITUS
     Dosage: SEE IMAGE
     Route: 058
     Dates: start: 20060401, end: 20070101
  3. BYETTA [Suspect]
     Indication: TYPE 2 DIABETES MELLITUS
     Dosage: SEE IMAGE
     Route: 058
     Dates: start: 20061201
  4. BYETTA [Suspect]
     Indication: TYPE 2 DIABETES MELLITUS
     Dosage: SEE IMAGE
     Route: 058
     Dates: start: 20070101
  5. BYETTA [Suspect]
  6. AMARYL [Concomitant]
  7. ATROVENT [Concomitant]
  8. QVAR [Concomitant]
  9. DUONEB [Concomitant]
  10. ZOCOR [Concomitant]
  11. GLUCOPHAGE [Concomitant]
  12. METFORMIN HCL [Concomitant]

REACTIONS (13)
  - BLOOD CHOLESTEROL INCREASED [None]
  - BLOOD GLUCOSE INCREASED [None]
  - BLOOD TRIGLYCERIDES INCREASED [None]
  - DIZZINESS [None]
  - HEADACHE [None]
  - HYPERTENSION [None]
  - INJECTION SITE RASH [None]
  - NAUSEA [None]
  - PHOTOPHOBIA [None]
  - PRESYNCOPE [None]
  - THYROID DISORDER [None]
  - VISION BLURRED [None]
  - WEIGHT INCREASED [None]
